FAERS Safety Report 8515488-4 (Version None)
Quarter: 2012Q3

REPORT INFORMATION
  Report Type: 
  Country: None (occurrence: None)
  Receive Date: 20120705
  Receipt Date: 20120619
  Transmission Date: 20120928
  Serious: Yes (Death, Hospitalization)
  Sender: FDA-Public Use
  Company Number: TCI2010A03236

PATIENT
  Age: 72 Year
  Sex: Male

DRUGS (3)
  1. DIURETICS [Concomitant]
  2. ALPHA GLUCOSIDASE INHIBITORS [Concomitant]
  3. ACTOS [Suspect]
     Indication: TYPE 2 DIABETES MELLITUS
     Dosage: 15 MG, (15 MG, 1 D), PER ORAL
     Route: 048
     Dates: start: 20090129, end: 20100330

REACTIONS (5)
  - CELL MARKER INCREASED [None]
  - INTERSTITIAL LUNG DISEASE [None]
  - ALANINE AMINOTRANSFERASE INCREASED [None]
  - ASPARTATE AMINOTRANSFERASE INCREASED [None]
  - GAMMA-GLUTAMYLTRANSFERASE INCREASED [None]
